FAERS Safety Report 8607642-8 (Version None)
Quarter: 2012Q3

REPORT INFORMATION
  Report Type: 
  Country: None (occurrence: None)
  Receive Date: 20120821
  Receipt Date: 20120807
  Transmission Date: 20120928
  Serious: Yes (Other)
  Sender: FDA-Public Use
  Company Number: ES-RANBAXY-2012R3-59053

PATIENT
  Sex: Female

DRUGS (12)
  1. SOLU-MEDROL [Suspect]
     Indication: PRODUCT USED FOR UNKNOWN INDICATION
     Dosage: 20 MG/DAY
     Route: 065
     Dates: start: 20120626
  2. NEULASTA [Suspect]
     Indication: PRODUCT USED FOR UNKNOWN INDICATION
     Dosage: UNK
     Route: 065
     Dates: start: 20120627
  3. EBSATINE [Suspect]
     Indication: FAECALOMA
  4. LORATADINE [Suspect]
     Indication: PRURITUS
     Route: 065
  5. LORATADINE [Suspect]
     Indication: FAECALOMA
     Route: 065
  6. EBSATINE [Suspect]
     Indication: PRURITUS
     Route: 065
  7. ACEBUTOLOL [Concomitant]
     Indication: PRODUCT USED FOR UNKNOWN INDICATION
     Dosage: 200 MG BID
     Route: 065
  8. HALAVEN [Suspect]
     Dosage: 1.58 MG/DAY
     Route: 042
     Dates: start: 20120626
  9. HALAVEN [Suspect]
     Indication: PRODUCT USED FOR UNKNOWN INDICATION
     Dosage: UNK
     Route: 042
     Dates: start: 20120619
  10. ZOFRAN [Suspect]
     Indication: PRODUCT USED FOR UNKNOWN INDICATION
     Dosage: 8 MG/DAY
     Route: 065
     Dates: start: 20120626
  11. NEXIUM [Concomitant]
     Indication: PRODUCT USED FOR UNKNOWN INDICATION
     Route: 065
  12. ZANTAC [Suspect]
     Indication: PRODUCT USED FOR UNKNOWN INDICATION
     Dosage: 50 MG/DAY
     Route: 065
     Dates: start: 20120626

REACTIONS (3)
  - FATIGUE [None]
  - HERPES ZOSTER [None]
  - NAUSEA [None]
